FAERS Safety Report 4747776-1 (Version None)
Quarter: 2005Q3

REPORT INFORMATION
  Report Type: 
  Country: None (occurrence: None)
  Receive Date: 20050817
  Receipt Date: 20050817
  Transmission Date: 20060218
  Serious: Yes (Hospitalization)
  Sender: FDA-Public Use
  Company Number: None

PATIENT
  Age: 64 Year
  Sex: Male
  Weight: 96 kg

DRUGS (2)
  1. TEGRETOL [Suspect]
     Indication: CONVULSION PROPHYLAXIS
     Dosage: 200 MG QID ORAL
     Route: 048
     Dates: start: 20050313, end: 20050429
  2. GABAPENTIN [Suspect]
     Indication: CONVULSION PROPHYLAXIS
     Dosage: 600 MG QID ORAL
     Route: 048
     Dates: start: 20050313, end: 20050429

REACTIONS (3)
  - BALANCE DISORDER [None]
  - FALL [None]
  - SKIN LACERATION [None]
